FAERS Safety Report 7676780-9 (Version None)
Quarter: 2011Q3

REPORT INFORMATION
  Report Type: 
  Country: None (occurrence: None)
  Receive Date: 20110811
  Receipt Date: 20110802
  Transmission Date: 20111222
  Serious: Yes (Other)
  Sender: FDA-Public Use
  Company Number: JP-BAYER-2011-058963

PATIENT
  Age: 69 Year
  Sex: Female
  Weight: 56 kg

DRUGS (19)
  1. SUTENT [Concomitant]
     Dosage: 37.5 MG, QD
     Route: 048
     Dates: start: 20101022, end: 20101029
  2. LEVOTHYROXINE SODIUM [Concomitant]
     Indication: HYPOTHYROIDISM
     Dosage: 50 ?G, QD
     Route: 048
     Dates: start: 20110603
  3. FAMOTIDINE [Concomitant]
     Indication: GASTRITIS
     Dosage: 40 MG, QD
     Route: 048
     Dates: start: 20110526
  4. FENTANYL [Concomitant]
     Indication: CANCER PAIN
     Dosage: 2.1 MG, QD
     Route: 062
     Dates: start: 20110522
  5. INDOMETHACIN [Concomitant]
     Indication: PAIN MANAGEMENT
     Dosage: 25 MG, QD
     Route: 054
     Dates: start: 20110517
  6. NEXAVAR [Suspect]
     Indication: RENAL CELL CARCINOMA
     Dosage: 400 MG, BID
     Route: 048
     Dates: start: 20110520, end: 20110610
  7. SUTENT [Concomitant]
     Dosage: DAILY DOSE 50 MG
     Route: 048
     Dates: start: 20101015, end: 20101021
  8. MICARDIS [Concomitant]
     Indication: HYPERTENSION
     Dosage: 80 MG, QD
     Route: 048
     Dates: start: 20110515
  9. CEFTRIAXONE SODIUM [Concomitant]
     Indication: INFECTION
     Dosage: 1 G, QD
     Route: 042
     Dates: start: 20110525, end: 20110529
  10. MEILAX [Concomitant]
     Dosage: 1 MG, QD
     Route: 048
     Dates: start: 20110515
  11. PANSPORIN T [Concomitant]
     Indication: INFECTION
     Dosage: 600 MG, QD
     Route: 048
     Dates: start: 20110530
  12. LYRICA [Suspect]
     Indication: CANCER PAIN
     Dosage: 150 MG, QD
     Route: 048
     Dates: start: 20110525, end: 20110712
  13. SUTENT [Concomitant]
     Dosage: 25 MG, QD
     Route: 048
     Dates: start: 20101126, end: 20110407
  14. NORVASC [Concomitant]
     Indication: HYPERTENSION
     Dosage: 15 MG, QD
     Route: 048
     Dates: start: 20110515
  15. PROCHLORPERAZINE [Concomitant]
     Dosage: 15 MG, QD
     Route: 048
     Dates: start: 20110506
  16. REBAMIPIDE [Concomitant]
     Indication: GASTRITIS
     Dosage: 300 MG, QD
     Route: 048
     Dates: start: 20110225
  17. ETODOLAC [Concomitant]
     Indication: CANCER PAIN
     Dosage: 400 MG, QD
     Route: 048
     Dates: start: 20110225
  18. OXINORM [Concomitant]
     Indication: CANCER PAIN
     Dosage: 2.5 MG, QD
     Route: 048
     Dates: start: 20110516
  19. SUTENT [Concomitant]
     Dosage: 12.5 MG, QD
     Route: 048
     Dates: start: 20110408, end: 20110505

REACTIONS (7)
  - FACIAL PARESIS [None]
  - GAIT DISTURBANCE [None]
  - ENCEPHALOPATHY [None]
  - SPEECH DISORDER [None]
  - DYSARTHRIA [None]
  - HYPOAESTHESIA [None]
  - DIZZINESS [None]
